FAERS Safety Report 26113604 (Version 1)
Quarter: 2025Q4

REPORT INFORMATION
  Report Type: Spontaneous
  Country: US (occurrence: US)
  Receive Date: 20251202
  Receipt Date: 20251202
  Transmission Date: 20260117
  Serious: No
  Sender: MYLAN
  Company Number: US-MYLANLABS-2025M1097063

PATIENT
  Age: 85 Year
  Sex: Male

DRUGS (4)
  1. BREYNA [Suspect]
     Active Substance: BUDESONIDE\FORMOTEROL FUMARATE
     Indication: Product used for unknown indication
     Dosage: 160 PER 4.5 MICROGRAM, QD (DAILY)
     Dates: start: 202309
  2. BREYNA [Suspect]
     Active Substance: BUDESONIDE\FORMOTEROL FUMARATE
     Dosage: 160 PER 4.5 MICROGRAM, QD (DAILY)
     Route: 055
     Dates: start: 202309
  3. BREYNA [Suspect]
     Active Substance: BUDESONIDE\FORMOTEROL FUMARATE
     Dosage: 160 PER 4.5 MICROGRAM, QD (DAILY)
     Route: 055
     Dates: start: 202309
  4. BREYNA [Suspect]
     Active Substance: BUDESONIDE\FORMOTEROL FUMARATE
     Dosage: 160 PER 4.5 MICROGRAM, QD (DAILY)
     Dates: start: 202309

REACTIONS (3)
  - Wrong technique in product usage process [Unknown]
  - Device malfunction [Unknown]
  - Device issue [Unknown]

NARRATIVE: CASE EVENT DATE: 20251112
